FAERS Safety Report 8925207 (Version 2)
Quarter: 2013Q1

REPORT INFORMATION
  Report Type: Spontaneous
  Country: US (occurrence: US)
  Receive Date: 20121126
  Receipt Date: 20130107
  Transmission Date: 20140127
  Serious: Yes (Other)
  Sender: FDA-Public Use
  Company Number: US-ASTELLAS-2012US011346

PATIENT
  Sex: Male
  Weight: 63 kg

DRUGS (2)
  1. PROGRAF [Suspect]
     Indication: HEART TRANSPLANT
     Dosage: 1 MG, BID
     Route: 048
  2. PROGRAF [Suspect]
     Dosage: 0.5 MG, UID/QD
     Route: 048

REACTIONS (1)
  - Coronary artery disease [Not Recovered/Not Resolved]
